FAERS Safety Report 8384686-5 (Version None)
Quarter: 2012Q2

REPORT INFORMATION
  Report Type: 
  Country: None (occurrence: None)
  Receive Date: 20120524
  Receipt Date: 20120514
  Transmission Date: 20120825
  Serious: Yes (Other)
  Sender: FDA-Public Use
  Company Number: US-ELI_LILLY_AND_COMPANY-US201204000363

PATIENT
  Age: 57 Year
  Sex: Female

DRUGS (2)
  1. FORTEO [Suspect]
     Indication: OSTEOPOROSIS
     Dosage: UNK, QD
  2. FORTEO [Suspect]
     Dosage: UNK, EVERY OTHER THIRD DAY

REACTIONS (6)
  - ARTHRALGIA [None]
  - MEDICATION ERROR [None]
  - MOVEMENT DISORDER [None]
  - PAIN [None]
  - HIP FRACTURE [None]
  - VERTIGO [None]
